FAERS Safety Report 10640411 (Version 1)
Quarter: 2014Q4

REPORT INFORMATION
  Report Type: Spontaneous
  Country: CA (occurrence: None)
  Receive Date: 20141205
  Receipt Date: 20141205
  Transmission Date: 20150529
  Serious: Yes (Hospitalization)
  Sender: FDA-Public Use
  Company Number: CA-017879

PATIENT
  Age: 67 Year
  Sex: Male

DRUGS (1)
  1. FIRMAGON [Suspect]
     Active Substance: DEGARELIX ACETATE
     Indication: PROSTATE CANCER
     Route: 058
     Dates: start: 20140630

REACTIONS (3)
  - Abasia [None]
  - Back pain [None]
  - Metastases to bone [None]
